FAERS Safety Report 8150333-0 (Version None)
Quarter: 2012Q1

REPORT INFORMATION
  Report Type: 
  Country: None (occurrence: None)
  Receive Date: 20120220
  Receipt Date: 20120213
  Transmission Date: 20120608
  Serious: Yes (Other)
  Sender: FDA-Public Use
  Company Number: US-BAYER-2011-115437

PATIENT
  Age: 19 Year
  Sex: Female
  Weight: 64.399 kg

DRUGS (2)
  1. MIRENA [Suspect]
     Dosage: UNK
     Dates: start: 20111129
  2. MIRENA [Suspect]
     Indication: CONTRACEPTION
     Dosage: 20 MCG/24HR, CONT
     Route: 015
     Dates: start: 20111019, end: 20111122

REACTIONS (4)
  - ABDOMINAL PAIN [None]
  - PREGNANCY WITH CONTRACEPTIVE DEVICE [None]
  - ABORTION SPONTANEOUS [None]
  - DEVICE EXPULSION [None]
